FAERS Safety Report 8286460-7 (Version None)
Quarter: 2012Q2

REPORT INFORMATION
  Report Type: 
  Country: None (occurrence: None)
  Receive Date: 20120416
  Receipt Date: 20120410
  Transmission Date: 20120825
  Serious: Yes (Hospitalization, Other)
  Sender: FDA-Public Use
  Company Number: US-PFIZER INC-2012089770

PATIENT
  Sex: Female
  Weight: 65 kg

DRUGS (10)
  1. LAMICTAL [Concomitant]
     Dosage: 200 MG (TWO TABLETS OF 100MG), 1X/DAY
  2. MULTI-VITAMINS [Concomitant]
     Dosage: UNK
  3. LANTUS [Concomitant]
     Indication: TYPE 1 DIABETES MELLITUS
     Dosage: 60 UNITS ONCE A DAY
  4. SULFASALAZINE [Concomitant]
     Dosage: 1000 MG (TWO TABLETS OF 500MG), 4X/DAY
  5. CYMBALTA [Concomitant]
     Indication: DEPRESSION
     Dosage: 60 MG, 2X/DAY
  6. HYDROCODONE [Concomitant]
     Dosage: 500 MG, 3X/DAY
     Route: 048
  7. LYRICA [Suspect]
     Indication: FIBROMYALGIA
     Dosage: 75 MG, 2X/DAY
     Route: 048
  8. GLIPIZIDE [Concomitant]
     Indication: TYPE 1 DIABETES MELLITUS
     Dosage: 10 MG, 1X/DAY
     Route: 048
  9. DICYCLOMINE [Concomitant]
     Dosage: 10 MG, 4X/DAY
     Route: 048
  10. METFORMIN [Concomitant]
     Indication: TYPE 1 DIABETES MELLITUS
     Dosage: 1000 MG, 1X/DAY
     Route: 048

REACTIONS (2)
  - GLYCOSYLATED HAEMOGLOBIN INCREASED [None]
  - COLITIS ULCERATIVE [None]
